FAERS Safety Report 24400953 (Version 1)
Quarter: 2024Q4

REPORT INFORMATION
  Report Type: Spontaneous
  Country: DE (occurrence: DE)
  Receive Date: 20241006
  Receipt Date: 20241006
  Transmission Date: 20250115
  Serious: Yes (Death, Life-Threatening, Hospitalization, Other)
  Sender: BRISTOL MYERS SQUIBB
  Company Number: DE-PEI-202400021566

PATIENT
  Age: 83 Year
  Sex: Female
  Weight: 58 kg

DRUGS (1)
  1. OPDIVO [Suspect]
     Active Substance: NIVOLUMAB
     Indication: Non-small cell lung cancer
     Dates: start: 20240611

REACTIONS (3)
  - Myocarditis [Fatal]
  - Autoimmune hepatitis [Fatal]
  - Cardiac failure [Fatal]
